FAERS Safety Report 11167419 (Version 4)
Quarter: 2015Q3

REPORT INFORMATION
  Report Type: Report from Study
  Country: TR (occurrence: TR)
  Receive Date: 20150605
  Receipt Date: 20150910
  Transmission Date: 20151125
  Serious: Yes (Death, Life-Threatening, Other)
  Sender: FDA-Public Use
  Company Number: TR-ALEXION-A201501991

PATIENT

DRUGS (2)
  1. SOLIRIS [Suspect]
     Active Substance: ECULIZUMAB
     Dosage: 900 MG, Q2W
     Route: 042
     Dates: start: 20120614, end: 20150821
  2. SOLIRIS [Suspect]
     Active Substance: ECULIZUMAB
     Indication: PAROXYSMAL NOCTURNAL HAEMOGLOBINURIA
     Dosage: 600 MG, QW
     Route: 042
     Dates: start: 20120511, end: 2012

REACTIONS (4)
  - Petechiae [Recovering/Resolving]
  - Cerebrovascular accident [Not Recovered/Not Resolved]
  - Thrombocytopenia [Recovering/Resolving]
  - Brain neoplasm [Fatal]

NARRATIVE: CASE EVENT DATE: 20150515
